FAERS Safety Report 17805487 (Version 2)
Quarter: 2020Q2

REPORT INFORMATION
  Report Type: Spontaneous
  Country: US (occurrence: US)
  Receive Date: 20200520
  Receipt Date: 20200526
  Transmission Date: 20200714
  Serious: Yes (Other)
  Sender: FDA-Public Use
  Company Number: US-ASTRAZENECA-2020SE62154

PATIENT
  Sex: Male

DRUGS (2)
  1. SYMBICORT [Suspect]
     Active Substance: BUDESONIDE\FORMOTEROL FUMARATE DIHYDRATE
     Dosage: 160/4.5 MCG UNKNOWN
     Route: 055
     Dates: start: 20200427
  2. VENTOLIN [Concomitant]
     Active Substance: ALBUTEROL SULFATE

REACTIONS (7)
  - Cough [Unknown]
  - Coronavirus test negative [Unknown]
  - Product use issue [Unknown]
  - Device defective [Unknown]
  - Intentional device misuse [Unknown]
  - Bipolar disorder [Unknown]
  - Incorrect dose administered by device [Unknown]
